FAERS Safety Report 8266562 (Version 2)
Quarter: 2012Q4

REPORT INFORMATION
  Report Type: 
  Country: US (occurrence: US)
  Receive Date: 20111129
  Receipt Date: 20121129
  Transmission Date: 20130627
  Serious: No
  Sender: FDA-Public Use
  Company Number: US-GLAXOSMITHKLINE-A0911981A

PATIENT
  Age: 52 Year
  Sex: Female

DRUGS (7)
  1. WELLBUTRIN SR [Suspect]
     Indication: TOBACCO USER
     Dosage: 150MG Twice per day
     Route: 048
     Dates: start: 2002, end: 201011
  2. DIGOXIN [Concomitant]
  3. FUROSEMIDE [Concomitant]
  4. XANAX [Concomitant]
  5. UNKNOWN MEDICATION [Concomitant]
  6. VITAMINS [Concomitant]
  7. TOPROL [Concomitant]

REACTIONS (1)
  - Apathy [Unknown]
